FAERS Safety Report 10639137 (Version 3)
Quarter: 2015Q1

REPORT INFORMATION
  Report Type: Report from Study
  Country: US (occurrence: US)
  Receive Date: 20141208
  Receipt Date: 20150219
  Transmission Date: 20150720
  Serious: Yes (Death, Other)
  Sender: FDA-Public Use
  Company Number: US-GILEAD-2014-0125773

PATIENT
  Sex: Male

DRUGS (1)
  1. AZTREONAM LYSINE [Suspect]
     Active Substance: AZTREONAM LYSINE
     Indication: OBLITERATIVE BRONCHIOLITIS
     Dosage: 75 MG, TID
     Route: 055
     Dates: start: 20100916

REACTIONS (2)
  - Death [Fatal]
  - Off label use [Unknown]
